FAERS Safety Report 8188114-4 (Version None)
Quarter: 2012Q1

REPORT INFORMATION
  Report Type: 
  Country: None (occurrence: None)
  Receive Date: 20120221
  Receipt Date: 20110926
  Transmission Date: 20120608
  Serious: Yes (Hospitalization)
  Sender: FDA-Public Use
  Company Number: PHEH2011US04382

PATIENT
  Age: 15 Year
  Sex: Female
  Weight: 54 kg

DRUGS (4)
  1. TOBI [Suspect]
     Indication: CYSTIC FIBROSIS
     Dosage: INHALATION
     Route: 055
     Dates: start: 20110816, end: 20110916
  2. TOBI [Suspect]
     Indication: PSEUDOMONAS INFECTION
     Dosage: INHALATION
     Route: 055
     Dates: start: 20110816, end: 20110916
  3. BACTRIM [Concomitant]
  4. CIPRO [Concomitant]

REACTIONS (2)
  - FORCED EXPIRATORY VOLUME ABNORMAL [None]
  - PULMONARY FUNCTION TEST DECREASED [None]
